FAERS Safety Report 4609135-1 (Version None)
Quarter: 2005Q1

REPORT INFORMATION
  Report Type: 
  Country: None (occurrence: None)
  Receive Date: 20050311
  Receipt Date: 20050225
  Transmission Date: 20050727
  Serious: Yes (Hospitalization)
  Sender: FDA-Public Use
  Company Number: CERZ-10808

PATIENT
  Age: 3 Year
  Sex: Female

DRUGS (2)
  1. CEREZYME [Suspect]
     Indication: GAUCHER'S DISEASE
     Dosage: 2000 UNITS Q2WKS IV
     Route: 042
     Dates: start: 20031001
  2. CEREZYME [Suspect]
     Indication: GAUCHER'S DISEASE
     Dosage: 600 UNITS Q2WKS IV
     Route: 042
     Dates: start: 20011015, end: 20031001

REACTIONS (5)
  - DYSPNOEA [None]
  - OXYGEN SATURATION DECREASED [None]
  - PNEUMONIA [None]
  - PYREXIA [None]
  - TREATMENT NONCOMPLIANCE [None]
